FAERS Safety Report 10080514 (Version 3)
Quarter: 2014Q2

REPORT INFORMATION
  Report Type: Report from Study
  Country: CO (occurrence: CO)
  Receive Date: 20140416
  Receipt Date: 20140624
  Transmission Date: 20141212
  Serious: Yes (Life-Threatening, Hospitalization, Other)
  Sender: FDA-Public Use
  Company Number: CO-ROCHE-1384285

PATIENT
  Age: 82 Year
  Sex: Female
  Weight: 60 kg

DRUGS (5)
  1. RANIBIZUMAB [Suspect]
     Indication: MACULAR DEGENERATION
     Dosage: ONGOING
     Route: 050
     Dates: start: 201306
  2. RANIBIZUMAB [Suspect]
     Dosage: ONGOING
     Route: 050
     Dates: start: 201402
  3. LOSARTAN POTASSIUM [Concomitant]
     Dosage: ONGOING
     Route: 065
  4. AMLODIPINE [Concomitant]
     Dosage: ONGOING
     Route: 065
  5. OMEPRAZOLE [Concomitant]
     Dosage: ONGOING
     Route: 065

REACTIONS (2)
  - Hypertension [Not Recovered/Not Resolved]
  - Thrombosis [Recovering/Resolving]
